FAERS Safety Report 6371132-6 (Version None)
Quarter: 2009Q3

REPORT INFORMATION
  Report Type: 
  Country: None (occurrence: None)
  Receive Date: 20090923
  Receipt Date: 20090918
  Transmission Date: 20100115
  Serious: Yes (Other)
  Sender: FDA-Public Use
  Company Number: HR-MERCK-0909USA02997

PATIENT
  Age: 53 Year
  Sex: Male

DRUGS (2)
  1. SINGULAIR [Suspect]
     Indication: ASTHMA
     Route: 048
     Dates: start: 20090829, end: 20090830
  2. SODIUM CHLORIDE [Concomitant]
     Indication: NASAL IRRIGATION
     Route: 065

REACTIONS (3)
  - EYE PRURITUS [None]
  - LIP OEDEMA [None]
  - PRURITUS [None]
